FAERS Safety Report 8249911-X (Version None)
Quarter: 2012Q2

REPORT INFORMATION
  Report Type: 
  Country: None (occurrence: None)
  Receive Date: 20120402
  Receipt Date: 20120328
  Transmission Date: 20120825
  Serious: Yes (Hospitalization, Other)
  Sender: FDA-Public Use
  Company Number: PHEH2012US005904

PATIENT
  Sex: Male
  Weight: 82.54 kg

DRUGS (11)
  1. AREDIA [Suspect]
     Indication: HYPERCALCAEMIA
  2. AREDIA [Suspect]
     Indication: MULTIPLE MYELOMA
  3. KEFLEX [Concomitant]
  4. AREDIA [Suspect]
     Indication: METASTASES TO BONE
     Dates: start: 19990601, end: 20040701
  5. LIDOCAINE [Concomitant]
     Route: 061
  6. VANCOMYCIN [Concomitant]
     Dosage: 1500 UKN, UNK
     Dates: start: 19990630
  7. VALTREX [Concomitant]
     Dosage: 500 MG, QD
     Dates: start: 19990630
  8. CIPROFLOXACIN [Concomitant]
     Dosage: 500 MG, BID
  9. OXYCONTIN [Concomitant]
     Route: 048
  10. FLUCONAZOLE [Concomitant]
     Dosage: 200 MG, QD
     Dates: start: 19990630
  11. MELPHALAN HYDROCHLORIDE [Concomitant]

REACTIONS (14)
  - KYPHOSIS [None]
  - PNEUMONIA [None]
  - PHARYNGITIS [None]
  - MUSCULOSKELETAL PAIN [None]
  - MOUTH ULCERATION [None]
  - BLISTER [None]
  - SINOBRONCHITIS [None]
  - MUCOSAL INFLAMMATION [None]
  - HEADACHE [None]
  - DECREASED APPETITE [None]
  - RIB FRACTURE [None]
  - FALL [None]
  - OSTEOPENIA [None]
  - NASAL CONGESTION [None]
